FAERS Safety Report 6829607-9 (Version None)
Quarter: 2010Q3

REPORT INFORMATION
  Report Type: 
  Country: None (occurrence: None)
  Receive Date: 20100709
  Receipt Date: 20070420
  Transmission Date: 20110219
  Serious: Yes (Other)
  Sender: FDA-Public Use
  Company Number: US-PFIZER INC-2007019999

PATIENT
  Sex: Female
  Weight: 63.5 kg

DRUGS (1)
  1. CHANTIX [Suspect]
     Indication: SMOKING CESSATION THERAPY
     Dates: start: 20070206, end: 20070307

REACTIONS (2)
  - MENSTRUATION DELAYED [None]
  - WEIGHT INCREASED [None]
